FAERS Safety Report 8462839-5 (Version None)
Quarter: 2012Q2

REPORT INFORMATION
  Report Type: 
  Country: None (occurrence: None)
  Receive Date: 20120625
  Receipt Date: 20120619
  Transmission Date: 20120825
  Serious: Yes (Other)
  Sender: FDA-Public Use
  Company Number: DE-SANOFI-AVENTIS-2012SA043656

PATIENT
  Age: 90 Year
  Sex: Male

DRUGS (6)
  1. FINASTERIDE [Concomitant]
     Route: 065
  2. METHOTREXATE [Concomitant]
     Indication: POLYARTHRITIS
     Route: 065
  3. METOPROLOL TARTRATE [Concomitant]
     Indication: HYPERTENSION
     Route: 065
  4. TAMSULOSIN HCL [Concomitant]
     Route: 065
  5. CLOPIDOGREL [Concomitant]
     Route: 065
  6. ARAVA [Suspect]
     Indication: POLYARTHRITIS
     Route: 048

REACTIONS (3)
  - LUNG DISORDER [None]
  - COUGH [None]
  - DYSPHONIA [None]
